FAERS Safety Report 5407028-3 (Version None)
Quarter: 2007Q3

REPORT INFORMATION
  Report Type: 
  Country: None (occurrence: None)
  Receive Date: 20070807
  Receipt Date: 20070803
  Transmission Date: 20080115
  Serious: Yes (Other)
  Sender: FDA-Public Use
  Company Number: US-AMGEN-US237210

PATIENT
  Age: 80 Year
  Sex: Male

DRUGS (1)
  1. VECTIBIX [Suspect]
     Indication: RENAL CELL CARCINOMA STAGE UNSPECIFIED
     Route: 065

REACTIONS (2)
  - FOLLICULITIS [None]
  - SKIN TOXICITY [None]
